FAERS Safety Report 18575050 (Version 3)
Quarter: 2020Q4

REPORT INFORMATION
  Report Type: Spontaneous
  Country: US (occurrence: US)
  Receive Date: 20201203
  Receipt Date: 20201228
  Transmission Date: 20210114
  Serious: Yes (Hospitalization)
  Sender: FDA-Public Use
  Company Number: US-PFIZER INC-2020471372

PATIENT
  Age: 73 Year
  Sex: Male
  Weight: 99.79 kg

DRUGS (8)
  1. LATANOPROST. [Suspect]
     Active Substance: LATANOPROST
     Indication: GLAUCOMA
     Dosage: UNK, 1X/DAY (1 DROP IN EACH EYE NIGHTLY)
     Dates: start: 2019
  2. TAMSULOSIN [Concomitant]
     Active Substance: TAMSULOSIN
     Indication: URINARY TRACT DISORDER
     Dosage: 0.4 MG, DAILY
     Route: 048
     Dates: start: 2018
  3. LATANOPROST. [Suspect]
     Active Substance: LATANOPROST
     Dosage: UNK, 1X/DAY
     Dates: start: 202009
  4. REFRESH TEARS LUBRICANT [Concomitant]
     Active Substance: CARBOXYMETHYLCELLULOSE SODIUM
     Indication: DRY EYE
     Dosage: UNK, AS NEEDED (UP TO 4X A DAY AT NIGHT)
     Dates: start: 2018
  5. LATANOPROST. [Suspect]
     Active Substance: LATANOPROST
     Dosage: UNK
  6. PANTOPRAZOLE [Concomitant]
     Active Substance: PANTOPRAZOLE
     Indication: GASTROOESOPHAGEAL REFLUX DISEASE
     Dosage: 40 MG, AS NEEDED
     Dates: start: 2018
  7. LATANOPROST. [Suspect]
     Active Substance: LATANOPROST
     Dosage: UNK, 1X/DAY
     Dates: start: 202009
  8. TRAVATAN [Concomitant]
     Active Substance: TRAVOPROST
     Indication: GLAUCOMA
     Dosage: UNK
     Dates: start: 2018

REACTIONS (6)
  - Eye irritation [Not Recovered/Not Resolved]
  - Eyelid function disorder [Not Recovered/Not Resolved]
  - Incorrect dose administered [Unknown]
  - Foreign body sensation in eyes [Not Recovered/Not Resolved]
  - Vision blurred [Not Recovered/Not Resolved]
  - Eye pain [Not Recovered/Not Resolved]

NARRATIVE: CASE EVENT DATE: 202005
